FAERS Safety Report 5527101-9 (Version None)
Quarter: 2007Q4

REPORT INFORMATION
  Report Type: 
  Country: None (occurrence: None)
  Receive Date: 20071127
  Receipt Date: 20071126
  Transmission Date: 20080405
  Serious: Yes (Death)
  Sender: FDA-Public Use
  Company Number: BR-BOEHRINGER INGELHEIM PHARMACEUTICALS, INC.-2007-BP-24330BR

PATIENT
  Sex: Male
  Weight: 63.2 kg

DRUGS (1)
  1. TIPRANAVIR / RITONAVIR CAPSULES [Suspect]
     Indication: HIV INFECTION
     Route: 048
     Dates: start: 20060216, end: 20070827

REACTIONS (2)
  - HYPOGLYCAEMIA [None]
  - SEPSIS [None]
